FAERS Safety Report 17423483 (Version 1)
Quarter: 2020Q1

REPORT INFORMATION
  Report Type: Spontaneous
  Country: GB (occurrence: GB)
  Receive Date: 20200217
  Receipt Date: 20200217
  Transmission Date: 20200409
  Serious: No
  Sender: FDA-Public Use
  Company Number: GB-ALKEM LABORATORIES LIMITED-GB-ALKEM-2019-00010

PATIENT
  Age: 89 Year
  Sex: Female

DRUGS (1)
  1. CEPHALEXIN. [Suspect]
     Active Substance: CEPHALEXIN
     Indication: LOWER RESPIRATORY TRACT INFECTION
     Dosage: 1 DOSE (3 PER DAY)
     Route: 048
     Dates: start: 20181120

REACTIONS (1)
  - Diarrhoea [Unknown]

NARRATIVE: CASE EVENT DATE: 20181120
